FAERS Safety Report 7899376-2 (Version None)
Quarter: 2011Q4

REPORT INFORMATION
  Report Type: 
  Country: None (occurrence: None)
  Receive Date: 20111107
  Receipt Date: 20110913
  Transmission Date: 20120403
  Serious: No
  Sender: FDA-Public Use
  Company Number: US-AMGEN-USASP2011046985

PATIENT
  Age: 69 Year
  Sex: Male

DRUGS (1)
  1. ENBREL [Suspect]
     Indication: PSORIATIC ARTHROPATHY
     Dosage: UNK
     Dates: start: 20110501, end: 20110501

REACTIONS (5)
  - INFECTION [None]
  - CALCULUS BLADDER [None]
  - URINARY TRACT INFECTION [None]
  - FUNGAL INFECTION [None]
  - PSORIATIC ARTHROPATHY [None]
